FAERS Safety Report 5249279-7 (Version None)
Quarter: 2007Q1

REPORT INFORMATION
  Report Type: 
  Country: None (occurrence: None)
  Receive Date: 20070222
  Receipt Date: 20070212
  Transmission Date: 20070707
  Serious: Yes (Congenital Anomaly)
  Sender: FDA-Public Use
  Company Number: GXKR2006GB07930

PATIENT

DRUGS (4)
  1. CO-CODAMOL (NGX)(ACETAMINOPHEN (PARACETAMOL), CODEINE PHOSPHATE) UNKNO [Suspect]
     Dosage: UNK, UNK, TRANSPLACENTAL
     Route: 064
  2. CO-DYDRAMOL (NGX)(DIHYDROCODEINE, PARACETAMOL) UNKNOWN [Suspect]
     Dosage: UNK, UNK, TRANSPLACENTAL
     Route: 064
  3. TRAMADOL HCL [Suspect]
     Dosage: UNK, UNK, TRANSPLACENTAL
     Route: 064
  4. IMIPRAMINE [Concomitant]

REACTIONS (2)
  - CONGENITAL MULTIPLEX ARTHROGRYPOSIS [None]
  - DRUG EXPOSURE DURING PREGNANCY [None]
